FAERS Safety Report 20695757 (Version 1)
Quarter: 2022Q2

REPORT INFORMATION
  Report Type: Spontaneous
  Country: GB (occurrence: GB)
  Receive Date: 20220411
  Receipt Date: 20220411
  Transmission Date: 20220721
  Serious: Yes (Other)
  Sender: FDA-Public Use
  Company Number: None

PATIENT
  Age: 54 Year
  Sex: Female
  Weight: 107 kg

DRUGS (12)
  1. BUPRENORPHINE [Suspect]
     Active Substance: BUPRENORPHINE
     Indication: Ill-defined disorder
     Dosage: UNK
     Dates: start: 20220404
  2. AMITRIPTYLINE HYDROCHLORIDE [Concomitant]
     Active Substance: AMITRIPTYLINE HYDROCHLORIDE
     Indication: Ill-defined disorder
     Dosage: UNK,1 ON
     Dates: start: 20220202
  3. BUPRENORPHINE [Concomitant]
     Active Substance: BUPRENORPHINE
     Indication: Ill-defined disorder
     Dosage: UNK, QW (APPLY ONE WEEKLY)
     Dates: start: 20220324
  4. BUPRENORPHINE [Concomitant]
     Active Substance: BUPRENORPHINE
     Indication: Ill-defined disorder
     Dosage: UNK, QW (APPLY ONE WEEKLY)
     Dates: start: 20220321
  5. CITALOPRAM [Concomitant]
     Active Substance: CITALOPRAM HYDROBROMIDE
     Indication: Ill-defined disorder
     Dosage: UNK, QD
     Dates: start: 20210713
  6. FENCINO [Concomitant]
     Indication: Ill-defined disorder
     Dosage: UNK, Q3D (APPLY ONE EVERY 72 HOURS)
     Dates: start: 20220404
  7. HYDROXOCOBALAMIN [Concomitant]
     Active Substance: HYDROXOCOBALAMIN
     Indication: Ill-defined disorder
     Dosage: UNK (USE AS DIRECTED)
     Dates: start: 20220209, end: 20220210
  8. LANSOPRAZOLE [Concomitant]
     Active Substance: LANSOPRAZOLE
     Indication: Ill-defined disorder
     Dosage: UNK, QD
     Dates: start: 20210713
  9. NAPROXEN [Concomitant]
     Active Substance: NAPROXEN
     Indication: Ill-defined disorder
     Dosage: UNK, BID
     Dates: start: 20211221
  10. BUPRENORPHINE [Concomitant]
     Active Substance: BUPRENORPHINE
     Indication: Ill-defined disorder
     Dosage: UNK, QW (APPLY ONE WEEKLY)
     Dates: start: 20220308
  11. TAMOXIFEN [Concomitant]
     Active Substance: TAMOXIFEN
     Indication: Ill-defined disorder
     Dosage: UNK, QD
     Dates: start: 20210713
  12. ACETAMINOPHEN\CODEINE PHOSPHATE [Concomitant]
     Active Substance: ACETAMINOPHEN\CODEINE PHOSPHATE
     Indication: Ill-defined disorder
     Dosage: UNK, TID (TAKE 1 OR 2 4 TIMES/DAY)
     Dates: start: 20211221

REACTIONS (2)
  - Skin reaction [Unknown]
  - Rash [Recovered/Resolved]

NARRATIVE: CASE EVENT DATE: 20220404
